FAERS Safety Report 9659220 (Version 1)
Quarter: 2013Q4

REPORT INFORMATION
  Report Type: Spontaneous
  Country: BG (occurrence: BG)
  Receive Date: 20131031
  Receipt Date: 20131031
  Transmission Date: 20140711
  Serious: Yes (Disabling)
  Sender: FDA-Public Use
  Company Number: BG-009507513-1310BGR010993

PATIENT
  Age: 87 Year
  Sex: Male

DRUGS (3)
  1. SINEMET [Suspect]
     Indication: PARKINSON^S DISEASE
     Dosage: HALF A TABLET FOUR TIMES A DAILY
  2. SINEMET [Suspect]
     Dosage: HALF TABLET FOUR TIMES DAILY; TOTAL DAILY DOSE: 50MG/500MG
     Route: 048
     Dates: start: 20130916, end: 20131018
  3. JUMEX [Concomitant]
     Indication: PARKINSON^S DISEASE
     Dosage: ONE 5 MG TABLET DAILY AT 16:00 H
     Route: 048

REACTIONS (3)
  - Parkinson^s disease [Recovering/Resolving]
  - Therapeutic response decreased [Unknown]
  - Wrong technique in drug usage process [Unknown]
